FAERS Safety Report 16594853 (Version 1)
Quarter: 2019Q3

REPORT INFORMATION
  Report Type: Report from Study
  Country: US (occurrence: US)
  Receive Date: 20190718
  Receipt Date: 20190718
  Transmission Date: 20191004
  Serious: Yes (Other)
  Sender: FDA-Public Use
  Company Number: US-JNJFOC-20180721284

PATIENT
  Sex: Male

DRUGS (1)
  1. IMBRUVICA [Suspect]
     Active Substance: IBRUTINIB
     Indication: CHRONIC LYMPHOCYTIC LEUKAEMIA
     Route: 048
     Dates: start: 20160216

REACTIONS (6)
  - Skin exfoliation [Unknown]
  - Peripheral swelling [Unknown]
  - Eye haemorrhage [Unknown]
  - Cataract [Unknown]
  - Joint swelling [Unknown]
  - Visual impairment [Unknown]
